FAERS Safety Report 7785679-9 (Version None)
Quarter: 2011Q3

REPORT INFORMATION
  Report Type: 
  Country: None (occurrence: None)
  Receive Date: 20110929
  Receipt Date: 20110929
  Transmission Date: 20111222
  Serious: Yes (Other)
  Sender: FDA-Public Use
  Company Number: None

PATIENT
  Age: 45 Year
  Sex: Female
  Weight: 76.657 kg

DRUGS (8)
  1. FUROSEMIDE [Concomitant]
     Route: 048
  2. SERTRALINE HYDROCHLORIDE [Concomitant]
     Route: 048
  3. LEVOTHYROXINE [Concomitant]
     Route: 048
  4. LITHIUM CARBONATE [Concomitant]
     Route: 048
  5. KLOR-CON [Concomitant]
     Route: 048
  6. SEROQUEL [Suspect]
     Indication: BIPOLAR DISORDER
     Dosage: 300MG
     Route: 048
  7. SEROQUEL [Concomitant]
     Route: 048
  8. CLONAZEPAM [Concomitant]
     Route: 048

REACTIONS (3)
  - OEDEMA PERIPHERAL [None]
  - THIRST [None]
  - VISUAL IMPAIRMENT [None]
